FAERS Safety Report 13237946 (Version 1)
Quarter: 2017Q1

REPORT INFORMATION
  Report Type: Spontaneous
  Country: US (occurrence: US)
  Receive Date: 20170215
  Receipt Date: 20170215
  Transmission Date: 20170428
  Serious: Yes (Other)
  Sender: FDA-Public Use
  Company Number: None

PATIENT
  Age: 72 Year
  Sex: Female
  Weight: 103 kg

DRUGS (28)
  1. FAMOTIDINE. [Concomitant]
     Active Substance: FAMOTIDINE
  2. HEPARIN FLUSH [Concomitant]
     Active Substance: HEPARIN SODIUM
  3. NORMAL SALINE FLUSH [Concomitant]
     Active Substance: SODIUM CHLORIDE
  4. BUDESONINE-FORMOTEROL [Concomitant]
  5. CETIRIZINE [Concomitant]
     Active Substance: CETIRIZINE HYDROCHLORIDE
  6. LEVOTHYROXINE. [Concomitant]
     Active Substance: LEVOTHYROXINE
  7. OMEPRAZOLE. [Concomitant]
     Active Substance: OMEPRAZOLE
  8. ONDANSETRON [Concomitant]
     Active Substance: ONDANSETRON
  9. TRIAMCINOLONE [Concomitant]
     Active Substance: TRIAMCINOLONE
  10. DUONEB (IPRATROPIUM-ALBUTEROL) [Concomitant]
  11. GABAPENTIN. [Concomitant]
     Active Substance: GABAPENTIN
  12. WARFARIN [Concomitant]
     Active Substance: WARFARIN
  13. GLIPIZINE [Concomitant]
  14. NITROGLYCERIN. [Concomitant]
     Active Substance: NITROGLYCERIN
  15. TOPIRAMATE. [Concomitant]
     Active Substance: TOPIRAMATE
  16. CARBOPLATIN. [Suspect]
     Active Substance: CARBOPLATIN
     Indication: METASTATIC SQUAMOUS CELL CARCINOMA
     Dosage: ?          OTHER FREQUENCY:ONCE;INTRAVENOUS (NOT OTHERWISE SPECIFIED) ?
     Route: 042
     Dates: start: 20170112, end: 20170112
  17. DIPHENHYDRAMINE. [Concomitant]
     Active Substance: DIPHENHYDRAMINE
  18. TAXOL [Concomitant]
     Active Substance: PACLITAXEL
  19. CITALOPRAM [Concomitant]
     Active Substance: CITALOPRAM HYDROBROMIDE
  20. LEVOFLOXACIN. [Concomitant]
     Active Substance: LEVOFLOXACIN
  21. ONDANSETRON [Concomitant]
     Active Substance: ONDANSETRON
  22. METHADONE [Concomitant]
     Active Substance: METHADONE HYDROCHLORIDE
  23. DEXAMETHASONE. [Concomitant]
     Active Substance: DEXAMETHASONE
  24. HYDROCORTISONE. [Concomitant]
     Active Substance: HYDROCORTISONE
  25. ATORVASTATIN [Concomitant]
     Active Substance: ATORVASTATIN
  26. TIZANIDINE. [Concomitant]
     Active Substance: TIZANIDINE
  27. ALBUTEROL-IPRATROPIUM [Concomitant]
     Active Substance: ALBUTEROL\IPRATROPIUM
  28. FUROSEMIDE. [Concomitant]
     Active Substance: FUROSEMIDE

REACTIONS (4)
  - Infusion related reaction [None]
  - Erythema [None]
  - Feeling hot [None]
  - Dyspnoea [None]

NARRATIVE: CASE EVENT DATE: 20170112
